FAERS Safety Report 22086624 (Version 2)
Quarter: 2023Q1

REPORT INFORMATION
  Report Type: Report from Study
  Country: US (occurrence: US)
  Receive Date: 20230312
  Receipt Date: 20230320
  Transmission Date: 20230417
  Serious: Yes (Hospitalization, Other)
  Sender: FDA-Public Use
  Company Number: US-002147023-NVSC2023US051617

PATIENT
  Sex: Female

DRUGS (2)
  1. COSENTYX [Suspect]
     Active Substance: SECUKINUMAB
     Indication: Psoriatic arthropathy
     Dosage: 150 MG, QMO
     Route: 065
  2. COSENTYX [Suspect]
     Active Substance: SECUKINUMAB
     Dosage: 300 MG (SHE TOOK 2 INJECTIONS ON THE 14 TH)
     Route: 065

REACTIONS (5)
  - Craniocerebral injury [Unknown]
  - Lupus-like syndrome [Unknown]
  - Hand deformity [Unknown]
  - General physical health deterioration [Unknown]
  - Product dose omission issue [Unknown]
